FAERS Safety Report 8001477-5 (Version None)
Quarter: 2011Q4

REPORT INFORMATION
  Report Type: 
  Country: None (occurrence: None)
  Receive Date: 20111222
  Receipt Date: 20111219
  Transmission Date: 20120403
  Serious: Yes (Other)
  Sender: FDA-Public Use
  Company Number: DE-ROCHE-1023528

PATIENT
  Sex: Male
  Weight: 76 kg

DRUGS (4)
  1. AVASTIN [Suspect]
     Indication: COLON CANCER METASTATIC
     Route: 042
     Dates: start: 20110104
  2. FLUOROURACIL [Concomitant]
     Indication: COLON CANCER METASTATIC
     Route: 042
     Dates: start: 20101208, end: 20110131
  3. FLUOROURACIL [Concomitant]
     Route: 042
     Dates: start: 20110201
  4. AVASTIN [Suspect]
     Route: 042
     Dates: start: 20110118, end: 20110215

REACTIONS (3)
  - ILL-DEFINED DISORDER [None]
  - HAEMORRHAGE [None]
  - HEMIANOPIA HOMONYMOUS [None]
